FAERS Safety Report 20499941 (Version 1)
Quarter: 2022Q1

REPORT INFORMATION
  Report Type: Report from Study
  Country: CA (occurrence: CA)
  Receive Date: 20220222
  Receipt Date: 20220222
  Transmission Date: 20220424
  Serious: Yes (Hospitalization, Other)
  Sender: FDA-Public Use
  Company Number: CA-HLS-202200345

PATIENT
  Age: 57 Year
  Sex: Female

DRUGS (2)
  1. CLOZARIL [Suspect]
     Active Substance: CLOZAPINE
     Indication: Product used for unknown indication
     Dosage: AT BEDTIME SINCE 2016.
     Route: 048
     Dates: start: 20160608
  2. DIVALPROEX SODIUM [Concomitant]
     Active Substance: DIVALPROEX SODIUM
     Indication: Product used for unknown indication
     Dosage: AT NIGHT AND 500MG EVERY MORNING
     Route: 048

REACTIONS (6)
  - Acute respiratory failure [Unknown]
  - Pneumonia aspiration [Unknown]
  - COVID-19 pneumonia [Unknown]
  - End stage renal disease [Unknown]
  - Thrombocytopenia [Unknown]
  - Pulmonary embolism [Unknown]

NARRATIVE: CASE EVENT DATE: 20220127
